FAERS Safety Report 9233315 (Version 1)
Quarter: 2013Q2

REPORT INFORMATION
  Report Type: Spontaneous
  Country: US (occurrence: US)
  Receive Date: 20130416
  Receipt Date: 20130416
  Transmission Date: 20140414
  Serious: Yes (Other)
  Sender: FDA-Public Use
  Company Number: US-ELI_LILLY_AND_COMPANY-US201304003336

PATIENT
  Sex: Female
  Weight: 69.5 kg

DRUGS (1)
  1. HUMALOG LISPRO [Suspect]
     Dosage: UNK
     Route: 058

REACTIONS (3)
  - Coma [Unknown]
  - Amnesia [Unknown]
  - Incorrect dose administered [Unknown]
